FAERS Safety Report 22646290 (Version 1)
Quarter: 2023Q2

REPORT INFORMATION
  Report Type: Spontaneous
  Country: CN (occurrence: CN)
  Receive Date: 20230627
  Receipt Date: 20230627
  Transmission Date: 20230722
  Serious: Yes (Other)
  Sender: FDA-Public Use
  Company Number: CN-PFIZER INC-PV202300110024

PATIENT
  Age: 63 Year
  Sex: Male

DRUGS (3)
  1. CYTARABINE [Suspect]
     Active Substance: CYTARABINE
     Indication: Acute promyelocytic leukaemia
     Dosage: 10 MG/M2, EVERY 12 HOURS, DAYS 1-14
  2. ACLARUBICIN [Suspect]
     Active Substance: ACLARUBICIN
     Indication: Acute promyelocytic leukaemia
     Dosage: 10 MG, DAYS 1-10
  3. GRANULOCYTE COLONY-STIMULATING FACTOR NOS [Suspect]
     Active Substance: GRANULOCYTE COLONY-STIMULATING FACTOR NOS
     Indication: Acute promyelocytic leukaemia
     Dosage: 300 UG, CYCLIC, 0-14

REACTIONS (2)
  - Acute respiratory distress syndrome [Unknown]
  - Acute coronary syndrome [Unknown]
